FAERS Safety Report 5506014-2 (Version None)
Quarter: 2007Q4

REPORT INFORMATION
  Report Type: 
  Country: None (occurrence: None)
  Receive Date: 20071101
  Receipt Date: 20071101
  Transmission Date: 20080405
  Serious: Yes (Hospitalization)
  Sender: FDA-Public Use
  Company Number: None

PATIENT
  Age: 74 Year
  Sex: Male
  Weight: 81.1939 kg

DRUGS (3)
  1. CETUXIMAB 100MG/50ML IMCLONE/BRISTOL MYERS SQUIBB [Suspect]
     Indication: LUNG ADENOCARCINOMA
     Dosage: 493MG -250MG/M2- WEEKLY -2ND DOSE- IV DRIP
     Route: 041
     Dates: start: 20071011, end: 20071025
  2. CETUXIMAB 100MG/50ML IMCLONE/BRISTOL MYERS SQUIBB [Suspect]
     Indication: METASTASES TO BONE
     Dosage: 493MG -250MG/M2- WEEKLY -2ND DOSE- IV DRIP
     Route: 041
     Dates: start: 20071011, end: 20071025
  3. CETUXIMAB 100MG/50ML IMCLONE/BRISTOL MYERS SQUIBB [Suspect]
     Indication: METASTASES TO LIVER
     Dosage: 493MG -250MG/M2- WEEKLY -2ND DOSE- IV DRIP
     Route: 041
     Dates: start: 20071011, end: 20071025

REACTIONS (1)
  - PNEUMONIA [None]
